FAERS Safety Report 6452824-7 (Version None)
Quarter: 2009Q4

REPORT INFORMATION
  Report Type: 
  Country: None (occurrence: None)
  Receive Date: 20091124
  Receipt Date: 20091116
  Transmission Date: 20100525
  Serious: Yes (Other)
  Sender: FDA-Public Use
  Company Number: DE-PFIZER INC-2009294823

PATIENT
  Age: 81 Year
  Sex: Female
  Weight: 57.596 kg

DRUGS (4)
  1. SORTIS [Suspect]
     Indication: HYPERCHOLESTEROLAEMIA
     Dosage: 10 MG PER DAY
     Route: 048
     Dates: start: 20031201, end: 20091111
  2. BLOPRESS PLUS [Concomitant]
     Indication: HYPERTENSION
     Dosage: DAILY DOSE 1 DF = 16 MG CANDESARTAN CILEXETIL/ 12.5 MG HYDROCHLOROTHIAZIDE
     Route: 048
  3. AMLODIPINE MESILATE [Concomitant]
     Indication: HYPERTENSION
     Dosage: 5 MG PER DAY
     Route: 048
  4. TEBONIN [Concomitant]
     Indication: DIZZINESS
     Dosage: 80 MG PER DAY
     Route: 048

REACTIONS (1)
  - DYSARTHRIA [None]
